FAERS Safety Report 4393019-0 (Version None)
Quarter: 2004Q3

REPORT INFORMATION
  Report Type: 
  Country: None (occurrence: None)
  Receive Date: 20040708
  Receipt Date: 20040608
  Transmission Date: 20050211
  Serious: Yes (Hospitalization)
  Sender: FDA-Public Use
  Company Number: FR-GLAXOSMITHKLINE-B0335307A

PATIENT
  Age: 82 Year
  Sex: Female

DRUGS (4)
  1. ZANTAC [Suspect]
     Indication: GASTROINTESTINAL ULCER
     Route: 048
     Dates: start: 20040522
  2. COVERSYL [Suspect]
     Indication: HYPERTENSION
     Route: 048
     Dates: start: 20040522
  3. CORDARONE [Suspect]
     Route: 048
     Dates: start: 20040522
  4. ANTICOAGULANTS (UNSPECIFIED) [Concomitant]
     Route: 048

REACTIONS (1)
  - NEUTROPENIA [None]
